FAERS Safety Report 22772884 (Version 3)
Quarter: 2023Q4

REPORT INFORMATION
  Report Type: Spontaneous
  Country: ES (occurrence: ES)
  Receive Date: 20230801
  Receipt Date: 20231017
  Transmission Date: 20240109
  Serious: Yes (Hospitalization, Other)
  Sender: FDA-Public Use
  Company Number: ES-GILEAD-2023-0632806

PATIENT
  Age: 77 Year
  Sex: Female
  Weight: 51.9 kg

DRUGS (39)
  1. PACLITAXEL [Suspect]
     Active Substance: PACLITAXEL
     Dosage: 295.8 MG
     Route: 042
     Dates: start: 20230505, end: 20230505
  2. PACLITAXEL [Suspect]
     Active Substance: PACLITAXEL
     Dosage: 258.5 MG
     Route: 042
     Dates: start: 20230605, end: 20230605
  3. CARBOPLATIN [Suspect]
     Active Substance: CARBOPLATIN
     Dosage: 459 MG
     Route: 042
     Dates: start: 20230505, end: 20230505
  4. CARBOPLATIN [Suspect]
     Active Substance: CARBOPLATIN
     Dosage: 459 MG
     Route: 042
     Dates: start: 20230605, end: 20230605
  5. DOMVANALIMAB [Suspect]
     Active Substance: DOMVANALIMAB
     Indication: Non-small cell lung cancer
     Dosage: 1200 MG
     Route: 042
     Dates: start: 20230505, end: 20230505
  6. DOMVANALIMAB [Suspect]
     Active Substance: DOMVANALIMAB
     Dosage: 1200 MG
     Route: 042
     Dates: start: 20230605, end: 20230605
  7. DOMVANALIMAB [Suspect]
     Active Substance: DOMVANALIMAB
     Dosage: 1200 MG
     Route: 042
     Dates: start: 20230801, end: 20230912
  8. ZIMBERELIMAB [Suspect]
     Active Substance: ZIMBERELIMAB
     Indication: Non-small cell lung cancer
     Dosage: 360 MG
     Route: 042
     Dates: start: 20230605, end: 20230605
  9. ZIMBERELIMAB [Suspect]
     Active Substance: ZIMBERELIMAB
     Dosage: 360 MG
     Route: 042
     Dates: start: 20230505, end: 20230505
  10. ZIMBERELIMAB [Suspect]
     Active Substance: ZIMBERELIMAB
     Dosage: 360 MG
     Route: 042
     Dates: start: 20230801, end: 20230912
  11. ACETAMINOPHEN [Concomitant]
     Active Substance: ACETAMINOPHEN
     Indication: Chest pain
     Route: 048
     Dates: start: 20210423
  12. ACETAMINOPHEN [Concomitant]
     Active Substance: ACETAMINOPHEN
     Dosage: UNK
     Route: 048
     Dates: start: 20210423, end: 20230719
  13. ASPIRIN [Concomitant]
     Active Substance: ASPIRIN
     Indication: Embolic stroke
     Route: 048
     Dates: start: 20230308
  14. DEXCHLORPHENIRAMINE [Concomitant]
     Active Substance: DEXCHLORPHENIRAMINE
     Indication: Premedication
     Route: 042
     Dates: start: 20230605, end: 20230605
  15. LEVOTHYROXINE SODIUM [Concomitant]
     Active Substance: LEVOTHYROXINE SODIUM
     Indication: Hypothyroidism
     Route: 048
     Dates: start: 20221020
  16. OMEPRAZOLE [Concomitant]
     Active Substance: OMEPRAZOLE
     Indication: Prophylaxis
     Route: 048
     Dates: start: 20230612, end: 20230616
  17. FAMOTIDINE [Concomitant]
     Active Substance: FAMOTIDINE
     Indication: Premedication
     Dosage: UNK
     Route: 048
     Dates: start: 20230505
  18. FAMOTIDINE [Concomitant]
     Active Substance: FAMOTIDINE
     Dosage: UNK
     Route: 048
     Dates: start: 20230505, end: 20230719
  19. ATORVASTATIN [Concomitant]
     Active Substance: ATORVASTATIN
     Indication: Dyslipidaemia
     Route: 048
     Dates: start: 20170918
  20. BECLOMETHASONE DIPROPIONATE\FORMOTEROL FUMARATE\GLYCOPYRROLATE [Concomitant]
     Active Substance: BECLOMETHASONE DIPROPIONATE\FORMOTEROL FUMARATE\GLYCOPYRROLATE
     Indication: Chronic obstructive pulmonary disease
     Route: 055
     Dates: start: 20230308
  21. BECLOMETHASONE DIPROPIONATE\FORMOTEROL FUMARATE\GLYCOPYRROLATE [Concomitant]
     Active Substance: BECLOMETHASONE DIPROPIONATE\FORMOTEROL FUMARATE\GLYCOPYRROLATE
     Dosage: UNK
     Route: 055
     Dates: start: 20230308, end: 20230719
  22. BISOPROLOL [Concomitant]
     Active Substance: BISOPROLOL\BISOPROLOL FUMARATE
     Indication: Chronic obstructive pulmonary disease
     Route: 048
     Dates: start: 20191202
  23. IRON [Concomitant]
     Active Substance: IRON
     Indication: Platelet count decreased
     Route: 048
     Dates: start: 20230529
  24. IRON [Concomitant]
     Active Substance: IRON
     Indication: Thrombocytopenia
  25. LORMETAZEPAM [Concomitant]
     Active Substance: LORMETAZEPAM
     Indication: Prophylaxis
     Route: 048
     Dates: start: 20221020
  26. ALBUTEROL [Concomitant]
     Active Substance: ALBUTEROL
     Indication: Chronic obstructive pulmonary disease
     Route: 055
     Dates: start: 20090225
  27. DEXAMETHASONE [Concomitant]
     Active Substance: DEXAMETHASONE
     Indication: Premedication
     Route: 042
     Dates: start: 20230605, end: 20230605
  28. ONDANSETRON [Concomitant]
     Active Substance: ONDANSETRON
     Indication: Premedication
     Dosage: UNK
     Route: 042
     Dates: start: 20230605, end: 20230605
  29. ONDANSETRON [Concomitant]
     Active Substance: ONDANSETRON
     Indication: Prophylaxis
     Route: 048
     Dates: start: 20230505
  30. ENALAPRIL [Concomitant]
     Active Substance: ENALAPRIL
     Indication: Hypertension
     Route: 048
     Dates: start: 20190725
  31. METOCLOPRAMIDE HYDROCHLORIDE [Concomitant]
     Active Substance: METOCLOPRAMIDE HYDROCHLORIDE
     Indication: Prophylaxis
     Route: 048
     Dates: start: 20230505
  32. FUROSEMIDE [Concomitant]
     Active Substance: FUROSEMIDE
     Indication: Hypertension
     Route: 048
     Dates: start: 20210526
  33. METAMIZOLE [Concomitant]
     Active Substance: METAMIZOLE
     Indication: Endocarditis
     Route: 042
     Dates: start: 20230612, end: 20230630
  34. LEVOTHYROXINE [Concomitant]
     Active Substance: LEVOTHYROXINE
     Indication: Hypothyroidism
     Route: 048
     Dates: start: 20221020
  35. LANSOPRAZOLE [Concomitant]
     Active Substance: LANSOPRAZOLE
     Indication: Gastrooesophageal reflux disease
     Route: 048
     Dates: start: 20141031
  36. ELIQUIS [Concomitant]
     Active Substance: APIXABAN
     Indication: Embolic stroke
     Route: 048
     Dates: start: 20190725
  37. APIXABAN [Concomitant]
     Active Substance: APIXABAN
     Dosage: UNK
     Dates: start: 20190725
  38. CALCIFEDIOL [Concomitant]
     Active Substance: CALCIFEDIOL
     Dosage: UNK
     Dates: start: 20191202, end: 20230719
  39. CALCIFEDIOL [Concomitant]
     Active Substance: CALCIFEDIOL
     Dosage: UNK
     Dates: start: 20191202

REACTIONS (3)
  - Febrile neutropenia [Recovered/Resolved]
  - Thrombocytopenia [Unknown]
  - Endocarditis [Recovered/Resolved]

NARRATIVE: CASE EVENT DATE: 20230612
